FAERS Safety Report 10423411 (Version 1)
Quarter: 2014Q3

REPORT INFORMATION
  Report Type: Spontaneous
  Country: US (occurrence: None)
  Receive Date: 20140728
  Receipt Date: 20140728
  Transmission Date: 20150326
  Serious: Yes (Hospitalization)
  Sender: FDA-Public Use
  Company Number: PHEH2013US023665

PATIENT
  Sex: Female

DRUGS (1)
  1. FORADIL [Suspect]
     Active Substance: FORMOTEROL FUMARATE
     Dosage: 1 DF, (ONE INHALATION, TWICE DAILY), INHALATION
     Route: 055

REACTIONS (4)
  - Pneumonia [None]
  - Wrong technique in drug usage process [None]
  - Device malfunction [None]
  - Incorrect product storage [None]
